FAERS Safety Report 24577218 (Version 1)
Quarter: 2024Q4

REPORT INFORMATION
  Report Type: Spontaneous
  Country: US (occurrence: US)
  Receive Date: 20241104
  Receipt Date: 20241104
  Transmission Date: 20250115
  Serious: No
  Sender: PERRIGO
  Company Number: US-PERRIGO-23US013951

PATIENT
  Sex: Female
  Weight: 77.098 kg

DRUGS (10)
  1. POLYETHYLENE GLYCOL 3350 [Suspect]
     Active Substance: POLYETHYLENE GLYCOL 3350
     Indication: Constipation
     Dosage: 17 G, QD
     Route: 048
     Dates: start: 2019, end: 20231208
  2. SENNOSIDES [Concomitant]
     Active Substance: SENNOSIDES
     Indication: Constipation
     Dosage: UNK
     Route: 065
     Dates: start: 2022
  3. PSYLLIUM HULLS [Concomitant]
     Indication: Constipation
     Dosage: UNK
     Route: 065
     Dates: start: 2018
  4. LASIX [Concomitant]
     Active Substance: FUROSEMIDE
     Indication: Fluid retention
     Dosage: 20 MG
     Route: 065
     Dates: start: 2021
  5. CALCIUM [Concomitant]
     Active Substance: CALCIUM
     Indication: Supplementation therapy
     Dosage: 600 MG
     Route: 065
     Dates: start: 1998
  6. SYNTHROID [Concomitant]
     Active Substance: LEVOTHYROXINE SODIUM
     Indication: Hypothyroidism
     Dosage: UNK
     Route: 065
     Dates: start: 2003
  7. MINERALS\VITAMINS [Concomitant]
     Active Substance: MINERALS\VITAMINS
     Indication: Macular degeneration
     Dosage: UNK
     Route: 065
     Dates: start: 2013
  8. ASPIRIN [Concomitant]
     Active Substance: ASPIRIN
     Indication: Anticoagulant therapy
     Dosage: UNK
     Route: 065
     Dates: start: 2018
  9. PSEUDOEPHEDRINE [Concomitant]
     Active Substance: PSEUDOEPHEDRINE
     Indication: Nasal congestion
     Dosage: UNK
     Route: 065
     Dates: start: 202311
  10. VITAMIN D NOS [Concomitant]
     Active Substance: CHOLECALCIFEROL\ERGOCALCIFEROL
     Indication: Supplementation therapy
     Dosage: UNK
     Route: 065
     Dates: start: 2003

REACTIONS (2)
  - Therapeutic product effect decreased [Unknown]
  - Incorrect product administration duration [Unknown]

NARRATIVE: CASE EVENT DATE: 20190101
